FAERS Safety Report 18752014 (Version 4)
Quarter: 2021Q1

REPORT INFORMATION
  Report Type: Report from Study
  Country: US (occurrence: US)
  Receive Date: 20210118
  Receipt Date: 20210322
  Transmission Date: 20210419
  Serious: Yes (Hospitalization)
  Sender: FDA-Public Use
  Company Number: US-JNJFOC-20210116804

PATIENT
  Age: 53 Year
  Sex: Male
  Weight: 89.44 kg

DRUGS (1)
  1. ESKETAMINE [Suspect]
     Active Substance: ESKETAMINE
     Indication: DEPRESSION
     Dosage: MEDICAL KIT NUMBER: 717031, 717033, 717034
     Dates: end: 20201222

REACTIONS (1)
  - Alcoholic psychosis [Recovered/Resolved]

NARRATIVE: CASE EVENT DATE: 20210106
